FAERS Safety Report 23881272 (Version 1)
Quarter: 2024Q2

REPORT INFORMATION
  Report Type: Spontaneous
  Country: AU (occurrence: AU)
  Receive Date: 20240521
  Receipt Date: 20240521
  Transmission Date: 20240715
  Serious: Yes (Hospitalization, Other)
  Sender: FDA-Public Use
  Company Number: AU-SUN PHARMACEUTICAL INDUSTRIES LTD-2024R1-446871

PATIENT
  Age: 55 Year
  Sex: Male

DRUGS (23)
  1. GEMCITABINE [Suspect]
     Active Substance: GEMCITABINE
     Indication: Ductal adenocarcinoma of pancreas
     Dosage: UNK (1960 MILLIGRAM)
     Route: 042
     Dates: start: 20231130, end: 20231130
  2. GEMCITABINE [Suspect]
     Active Substance: GEMCITABINE
     Dosage: UNK (1960 MILLIGRAM)
     Route: 042
     Dates: start: 20231207, end: 20231207
  3. GEMCITABINE [Suspect]
     Active Substance: GEMCITABINE
     Dosage: UNK (1570 MILLIGRAM)
     Route: 042
     Dates: start: 20231214, end: 20231214
  4. GEMCITABINE [Suspect]
     Active Substance: GEMCITABINE
     Dosage: UNK (1570 MILLIGRAM)
     Route: 042
     Dates: start: 20231228, end: 20231228
  5. GEMCITABINE [Suspect]
     Active Substance: GEMCITABINE
     Dosage: UNK (1570 MILLIGRAM)
     Route: 042
     Dates: start: 20240103, end: 20240103
  6. GEMCITABINE [Suspect]
     Active Substance: GEMCITABINE
     Dosage: UNK (1570 MILLIGRAM)
     Route: 042
     Dates: start: 20240110, end: 20240110
  7. PACLITAXEL [Suspect]
     Active Substance: PACLITAXEL
     Indication: Ductal adenocarcinoma of pancreas
     Dosage: UNK (245 MILLIGRAM)
     Route: 042
     Dates: start: 20231130, end: 20231130
  8. PACLITAXEL [Suspect]
     Active Substance: PACLITAXEL
     Dosage: UNK (245 MILLIGRAM)
     Route: 042
     Dates: start: 20231207, end: 20231207
  9. PACLITAXEL [Suspect]
     Active Substance: PACLITAXEL
     Dosage: UNK (196 MILLIGRAM)
     Route: 042
     Dates: start: 20231214, end: 20231214
  10. PACLITAXEL [Suspect]
     Active Substance: PACLITAXEL
     Dosage: UNK (196 MILLIGRAM)
     Route: 042
     Dates: start: 20231228, end: 20231228
  11. PACLITAXEL [Suspect]
     Active Substance: PACLITAXEL
     Dosage: UNK (196 MILLIGRAM)
     Route: 042
     Dates: start: 20240103, end: 20240103
  12. PACLITAXEL [Suspect]
     Active Substance: PACLITAXEL
     Dosage: UNK
     Route: 042
     Dates: start: 20240110, end: 20240110
  13. PACLITAXEL [Suspect]
     Active Substance: PACLITAXEL
     Dosage: UNK (196 MILLIGRAM)
     Route: 042
     Dates: start: 20240124, end: 20240124
  14. CELEBREX [Concomitant]
     Active Substance: CELECOXIB
     Indication: Arthralgia
     Dosage: UNK (100 MILLIGRAM)
     Route: 048
     Dates: start: 20231115
  15. CREON [Concomitant]
     Active Substance: PANCRELIPASE AMYLASE\PANCRELIPASE LIPASE\PANCRELIPASE PROTEASE
     Indication: Product used for unknown indication
     Dosage: UNK (105000 INTERNATIONAL UNIT)
     Route: 048
     Dates: start: 20231207
  16. SORBITOL [Concomitant]
     Active Substance: SORBITOL
     Indication: Constipation
     Dosage: UNK (30 MILLIGRAM)
     Route: 048
     Dates: start: 20231204
  17. DEXAMETHASONE [Concomitant]
     Active Substance: DEXAMETHASONE
     Indication: Prophylaxis of nausea and vomiting
     Dosage: UNK (8 MILLIGRAM)
     Route: 042
     Dates: start: 20231130
  18. LOPERAMIDE HYDROCHLORIDE [Concomitant]
     Active Substance: LOPERAMIDE HYDROCHLORIDE
     Indication: Diarrhoea
     Dosage: UNK (2 MILLIGRAM)
     Route: 048
     Dates: start: 20231211
  19. PALONOSETRON [Concomitant]
     Active Substance: PALONOSETRON
     Indication: Prophylaxis of nausea and vomiting
     Dosage: UNK (250 MICROGRAM)
     Route: 042
     Dates: start: 20231130
  20. PANTOPRAZOLE SODIUM [Concomitant]
     Active Substance: PANTOPRAZOLE SODIUM
     Indication: Reflux gastritis
     Dosage: UNK (40 MILLIGRAM; INTERVAL: 1 DAY)
     Route: 048
     Dates: start: 20231207
  21. TAPENTADOL [Concomitant]
     Active Substance: TAPENTADOL
     Indication: Arthralgia
     Dosage: UNK (50 MILLIGRAM)
     Route: 048
     Dates: start: 20231123
  22. TAPENTADOL [Concomitant]
     Active Substance: TAPENTADOL
     Dosage: UNK (200 MILLIGRAM; INTERVAL: 1 DAY)
     Route: 048
     Dates: start: 20231130
  23. TAPENTADOL [Concomitant]
     Active Substance: TAPENTADOL
     Dosage: UNK (20 MILLIGRAM;INTERVAL: 1 DAY)
     Route: 048
     Dates: start: 20231130

REACTIONS (1)
  - Pneumocystis jirovecii pneumonia [Unknown]

NARRATIVE: CASE EVENT DATE: 20240124
